FAERS Safety Report 15068269 (Version 1)
Quarter: 2018Q2

REPORT INFORMATION
  Report Type: Report from Study
  Country: MX (occurrence: MX)
  Receive Date: 20180626
  Receipt Date: 20180626
  Transmission Date: 20180711
  Serious: Yes (Other)
  Sender: FDA-Public Use
  Company Number: MX-ROCHE-2145260

PATIENT
  Sex: Female
  Weight: 85 kg

DRUGS (5)
  1. CHLOROQUINE. [Concomitant]
     Active Substance: CHLOROQUINE
     Indication: RHEUMATOID ARTHRITIS
     Dosage: CURRENTLY ONGOING
     Route: 048
     Dates: start: 20020518
  2. METHOTREXATE. [Concomitant]
     Active Substance: METHOTREXATE
     Indication: RHEUMATOID ARTHRITIS
     Dosage: CURRENTLY ONGOING
     Route: 048
     Dates: start: 20040921
  3. LEVOTHYROXINE ^ROCHE^ [Concomitant]
     Indication: HYPOTHYROIDISM
     Dosage: CURRENTLY ONGOING
     Route: 048
     Dates: start: 20130521
  4. FOLIC ACID. [Concomitant]
     Active Substance: FOLIC ACID
     Indication: RHEUMATOID ARTHRITIS
     Dosage: CURRENTLY ONGOING
     Route: 048
     Dates: start: 20020518
  5. TOCILIZUMAB. [Suspect]
     Active Substance: TOCILIZUMAB
     Indication: RHEUMATOID ARTHRITIS
     Dosage: CURRENTLY ONGOING
     Route: 042
     Dates: start: 20130605

REACTIONS (1)
  - Cholecystitis chronic [Not Recovered/Not Resolved]

NARRATIVE: CASE EVENT DATE: 201611
